FAERS Safety Report 5637211-3 (Version None)
Quarter: 2008Q1

REPORT INFORMATION
  Report Type: 
  Country: None (occurrence: None)
  Receive Date: 20080220
  Receipt Date: 20080220
  Transmission Date: 20080703
  Serious: Yes (Hospitalization)
  Sender: FDA-Public Use
  Company Number: None

PATIENT
  Age: 78 Year
  Sex: Male

DRUGS (1)
  1. METHOTREXATE [Suspect]
     Dosage: 20MG QWEEK PO
     Route: 048
     Dates: start: 20061211, end: 20070319

REACTIONS (2)
  - ANAEMIA [None]
  - FAECES DISCOLOURED [None]
